FAERS Safety Report 5360588-3 (Version None)
Quarter: 2007Q2

REPORT INFORMATION
  Report Type: 
  Country: None (occurrence: None)
  Receive Date: 20070618
  Receipt Date: 20070605
  Transmission Date: 20071010
  Serious: Yes (Other)
  Sender: FDA-Public Use
  Company Number: US-ELI_LILLY_AND_COMPANY-US200706001293

PATIENT
  Sex: Male

DRUGS (3)
  1. CIALIS [Suspect]
     Dosage: 20 MG, UNK
     Dates: start: 20060101
  2. CIALIS [Suspect]
     Dates: start: 20061101
  3. CIALIS [Suspect]
     Dosage: 20 MG, UNK
     Dates: start: 20060101

REACTIONS (2)
  - DRUG INEFFECTIVE [None]
  - SURGERY [None]
